FAERS Safety Report 24365420 (Version 2)
Quarter: 2024Q4

REPORT INFORMATION
  Report Type: Spontaneous
  Country: FR (occurrence: FR)
  Receive Date: 20240926
  Receipt Date: 20241022
  Transmission Date: 20250115
  Serious: Yes (Hospitalization, Other)
  Sender: CELLTRION
  Company Number: None

PATIENT

DRUGS (21)
  1. RITUXIMAB [Suspect]
     Active Substance: RITUXIMAB
     Indication: Central nervous system lymphoma
     Dosage: 660 MG, EVERY 1 DAY/AN INJECTION OF 650 MG ON D8C1
     Route: 042
     Dates: start: 20231206, end: 20231206
  2. RITUXIMAB [Suspect]
     Active Substance: RITUXIMAB
     Dosage: 660 MG, EVERY 1 DAY
     Route: 042
     Dates: start: 20231213, end: 20231213
  3. RITUXIMAB [Suspect]
     Active Substance: RITUXIMAB
     Dosage: 660 MG, EVERY 1 DAY
     Route: 042
     Dates: start: 20231220, end: 20231220
  4. RITUXIMAB [Suspect]
     Active Substance: RITUXIMAB
     Dosage: 660 MG, EVERY 1 DAY
     Route: 042
     Dates: start: 20231129, end: 20231129
  5. RITUXIMAB [Suspect]
     Active Substance: RITUXIMAB
     Dosage: 660 MG, EVERY 1 DAY
     Route: 042
     Dates: start: 20231227, end: 20231227
  6. RITUXIMAB [Suspect]
     Active Substance: RITUXIMAB
     Dosage: 660 MG, EVERY 1 DAY
     Route: 042
     Dates: start: 20240202, end: 20240202
  7. IMBRUVICA [Suspect]
     Active Substance: IBRUTINIB
     Indication: Central nervous system lymphoma
     Dosage: 560 MG, EVERY 1 DAY
     Route: 048
     Dates: start: 20231129, end: 20231227
  8. IMBRUVICA [Suspect]
     Active Substance: IBRUTINIB
     Dosage: 420 MG PER DAY CONTINUOUSLY
     Route: 048
     Dates: start: 20231227, end: 20240126
  9. IMBRUVICA [Suspect]
     Active Substance: IBRUTINIB
     Dosage: 560 MG, EVERY 1 DAY
     Route: 048
     Dates: start: 20240202, end: 20240222
  10. FUROSEMIDE [Suspect]
     Active Substance: FUROSEMIDE
     Indication: Oedema peripheral
     Dosage: 20 MG, EVERY 1 DAY/20 MG PER HOUR
     Route: 048
     Dates: start: 20240123, end: 20240130
  11. LENALIDOMIDE [Suspect]
     Active Substance: LENALIDOMIDE
     Indication: Central nervous system lymphoma
     Dosage: 20 MG, EVERY 1 DAY
     Route: 048
     Dates: start: 20231129, end: 20231218
  12. LENALIDOMIDE [Suspect]
     Active Substance: LENALIDOMIDE
     Dosage: 25 MG PER DAY FOR 21 DAYS
     Route: 048
     Dates: start: 20231227, end: 20240117
  13. LENALIDOMIDE [Suspect]
     Active Substance: LENALIDOMIDE
     Dosage: 25 MG, EVERY 1 DAY
     Route: 048
     Dates: start: 20240202, end: 20240222
  14. PANTOPRAZOLE [Concomitant]
     Active Substance: PANTOPRAZOLE
     Dosage: UNK
     Dates: start: 20231129
  15. PREDNISONE [Concomitant]
     Active Substance: PREDNISONE
     Dosage: UNK
     Dates: start: 20231120
  16. POTASSIUM CHLORIDE [Concomitant]
     Active Substance: POTASSIUM CHLORIDE
     Dosage: BEFORE 12/26/2023
  17. PHOCYTAN [Concomitant]
     Active Substance: .ALPHA.-GLUCOSE-1-PHOSPHATE DISODIUM TETRAHYDRATE
     Dosage: BEFORE 12/26/2023
  18. VALACYCLOVIR HYDROCHLORIDE [Concomitant]
     Active Substance: VALACYCLOVIR HYDROCHLORIDE
     Indication: Infection prophylaxis
     Dosage: FOR SEVERAL MONTHS
  19. BACTRIM [Concomitant]
     Active Substance: SULFAMETHOXAZOLE\TRIMETHOPRIM
     Indication: Infection prophylaxis
     Dosage: UNK
     Dates: start: 20231214
  20. ATOVAQUONE [Concomitant]
     Active Substance: ATOVAQUONE
  21. BISOPROLOL [Concomitant]
     Active Substance: BISOPROLOL\BISOPROLOL FUMARATE
     Dosage: UNK
     Dates: start: 20231224

REACTIONS (1)
  - Drug reaction with eosinophilia and systemic symptoms [Recovering/Resolving]

NARRATIVE: CASE EVENT DATE: 20240222
